FAERS Safety Report 6139899-X (Version None)
Quarter: 2009Q1

REPORT INFORMATION
  Report Type: 
  Country: None (occurrence: None)
  Receive Date: 20090331
  Receipt Date: 20090331
  Transmission Date: 20090719
  Serious: Yes (Hospitalization)
  Sender: FDA-Public Use
  Company Number: None

PATIENT
  Sex: Female

DRUGS (2)
  1. FOSAMAX [Suspect]
     Indication: OSTEOPOROSIS PROPHYLAXIS
     Dosage: 10MG ONCE DAILY BY MOUTH
     Route: 048
     Dates: start: 20060301, end: 20081201
  2. GABAPENTIN [Concomitant]

REACTIONS (1)
  - OSTEONECROSIS [None]
